FAERS Safety Report 7768297-8 (Version None)
Quarter: 2011Q3

REPORT INFORMATION
  Report Type: 
  Country: None (occurrence: None)
  Receive Date: 20110922
  Receipt Date: 20110224
  Transmission Date: 20111222
  Serious: No
  Sender: FDA-Public Use
  Company Number: US-ASTRAZENECA-2011SE10466

PATIENT
  Age: 49 Year
  Sex: Male
  Weight: 86.2 kg

DRUGS (8)
  1. LITHIUM CARBONATE [Concomitant]
  2. FISH OIL [Concomitant]
  3. NIASPAN [Concomitant]
  4. VITAMIN TAB [Concomitant]
  5. SEROQUEL [Suspect]
     Route: 048
  6. CRESTOR [Concomitant]
  7. SEROQUEL [Suspect]
     Indication: SLEEP DISORDER
     Route: 048
  8. RAMIPRIL [Concomitant]

REACTIONS (4)
  - CHOKING SENSATION [None]
  - DYSPHAGIA [None]
  - THIRST [None]
  - DYSURIA [None]
